FAERS Safety Report 6993484-6 (Version None)
Quarter: 2010Q3

REPORT INFORMATION
  Report Type: 
  Country: None (occurrence: None)
  Receive Date: 20100917
  Receipt Date: 20100315
  Transmission Date: 20110219
  Serious: No
  Sender: FDA-Public Use
  Company Number: US-ASTRAZENECA-2010SE11575

PATIENT
  Sex: Male

DRUGS (1)
  1. SEROQUEL XR [Suspect]
     Indication: INSOMNIA
     Route: 048

REACTIONS (5)
  - AMNESIA [None]
  - INCOHERENT [None]
  - IRRITABILITY [None]
  - MOOD SWINGS [None]
  - SLUGGISHNESS [None]
